FAERS Safety Report 18671398 (Version 1)
Quarter: 2020Q4

REPORT INFORMATION
  Report Type: Report from Study
  Country: ZA (occurrence: ZA)
  Receive Date: 20201228
  Receipt Date: 20201228
  Transmission Date: 20210114
  Serious: Yes (Death, Life-Threatening, Hospitalization, Other)
  Sender: FDA-Public Use
  Company Number: ZA-JNJFOC-20200211456

PATIENT
  Age: 35 Year
  Sex: Female
  Weight: 59.7 kg

DRUGS (25)
  1. USTEKINUMAB [Suspect]
     Active Substance: USTEKINUMAB
     Dosage: MEDICAL KIT NUMBER: 22426
     Route: 058
     Dates: start: 20200121
  2. OMEPRAZOLE. [Concomitant]
     Active Substance: OMEPRAZOLE
     Route: 048
     Dates: start: 20200204, end: 20200210
  3. ATROPIN                            /00002801/ [Concomitant]
     Active Substance: ATROPINE
     Route: 042
  4. CLEXANE [Concomitant]
     Active Substance: ENOXAPARIN SODIUM
     Indication: THROMBOSIS PROPHYLAXIS
     Route: 058
     Dates: start: 20200212, end: 20200213
  5. PARACETAMOL [Concomitant]
     Active Substance: ACETAMINOPHEN
     Indication: PAIN
     Dosage: AS NECESSARY
     Route: 048
     Dates: start: 2018
  6. PYRIDOXINE [Concomitant]
     Active Substance: PYRIDOXINE
     Indication: PROPHYLAXIS
     Route: 048
     Dates: start: 20191025
  7. TRAMADOL. [Concomitant]
     Active Substance: TRAMADOL
     Indication: PAIN
     Dosage: 1 CAPSULE UP TO 3 TIMES DAILY
     Route: 048
     Dates: start: 20191010
  8. ISONIAZIDE [Concomitant]
     Active Substance: ISONIAZID
     Indication: LATENT TUBERCULOSIS
     Route: 048
     Dates: start: 20191025
  9. CALCIUM GLUCONATED [Concomitant]
     Dosage: I.V. SOLLUTIONS
     Route: 042
     Dates: start: 20200212, end: 20200212
  10. ADRENALIN                          /00003901/ [Concomitant]
     Active Substance: EPINEPHRINE
     Route: 042
     Dates: start: 20200214, end: 20200214
  11. ADRENALIN                          /00003901/ [Concomitant]
     Active Substance: EPINEPHRINE
     Route: 042
  12. DEXTROSE. [Concomitant]
     Active Substance: DEXTROSE
     Route: 042
     Dates: start: 20200211, end: 20200211
  13. ATROPIN                            /00002801/ [Concomitant]
     Active Substance: ATROPINE
     Route: 042
  14. USTEKINUMAB [Suspect]
     Active Substance: USTEKINUMAB
     Indication: SYSTEMIC LUPUS ERYTHEMATOSUS
     Dosage: INFUSION
     Route: 042
     Dates: start: 20191126
  15. METHOTREXATE. [Concomitant]
     Active Substance: METHOTREXATE
     Indication: SYSTEMIC LUPUS ERYTHEMATOSUS
     Route: 048
     Dates: start: 20190613
  16. FOLATE [Concomitant]
     Active Substance: FOLATE SODIUM
     Route: 065
     Dates: start: 20190211
  17. ISONIAZIDE [Concomitant]
     Active Substance: ISONIAZID
     Route: 048
     Dates: start: 20200211
  18. ENALAPRIL [Concomitant]
     Active Substance: ENALAPRIL
     Indication: PROTEINURIA
     Route: 048
     Dates: start: 20200203, end: 20200210
  19. CALCIUM                            /00060701/ [Concomitant]
     Active Substance: CALCIUM
     Indication: ADVERSE EVENT
     Route: 048
     Dates: start: 20200204, end: 20200211
  20. PYRIDOXINE [Concomitant]
     Active Substance: PYRIDOXINE
     Route: 048
     Dates: start: 20200211
  21. OMEPRAZOLE. [Concomitant]
     Active Substance: OMEPRAZOLE
     Route: 048
     Dates: start: 20200210, end: 20200211
  22. OMEPRAZOLE. [Concomitant]
     Active Substance: OMEPRAZOLE
     Route: 048
     Dates: start: 20200211
  23. FOLATE [Concomitant]
     Active Substance: FOLATE SODIUM
     Indication: PROPHYLAXIS
     Route: 048
     Dates: start: 20190131
  24. DEXTROSE. [Concomitant]
     Active Substance: DEXTROSE
     Route: 042
     Dates: start: 20200212, end: 20200212
  25. ADRENALIN                          /00003901/ [Concomitant]
     Active Substance: EPINEPHRINE
     Route: 042

REACTIONS (3)
  - Lupus nephritis [Not Recovered/Not Resolved]
  - Endocarditis staphylococcal [Fatal]
  - Hypersensitivity vasculitis [Not Recovered/Not Resolved]

NARRATIVE: CASE EVENT DATE: 20200109
